FAERS Safety Report 7293880-6 (Version None)
Quarter: 2011Q1

REPORT INFORMATION
  Report Type: 
  Country: None (occurrence: None)
  Receive Date: 20110215
  Receipt Date: 20110204
  Transmission Date: 20110831
  Serious: Yes (Other)
  Sender: FDA-Public Use
  Company Number: US-JNJFOC-20110102512

PATIENT
  Sex: Male
  Weight: 56.7 kg

DRUGS (12)
  1. INVEGA SUSTENNA [Suspect]
     Route: 030
  2. HALDOL [Suspect]
     Indication: SCHIZOPHRENIA, PARANOID TYPE
     Route: 030
  3. HALDOL [Suspect]
     Indication: SCHIZOAFFECTIVE DISORDER
     Route: 030
  4. INVEGA SUSTENNA [Suspect]
     Route: 030
  5. RISPERDAL CONSTA [Concomitant]
     Indication: SCHIZOPHRENIA, PARANOID TYPE
     Route: 030
  6. GEODON [Concomitant]
     Indication: SCHIZOAFFECTIVE DISORDER
  7. TRAZODONE [Concomitant]
     Indication: SLEEP DISORDER
     Route: 048
  8. INVEGA SUSTENNA [Suspect]
     Indication: SCHIZOAFFECTIVE DISORDER
     Route: 030
  9. INVEGA SUSTENNA [Suspect]
     Indication: SCHIZOPHRENIA, PARANOID TYPE
     Route: 030
  10. GEODON [Concomitant]
     Indication: SCHIZOPHRENIA, PARANOID TYPE
  11. COGENTIN [Concomitant]
     Indication: PROPHYLAXIS
     Dosage: 1-2 MG TABLETS
     Route: 048
  12. HALDOL [Suspect]
     Indication: PRODUCT USED FOR UNKNOWN INDICATION
     Route: 048

REACTIONS (8)
  - AGGRESSION [None]
  - ABNORMAL BEHAVIOUR [None]
  - HALLUCINATION, AUDITORY [None]
  - INSOMNIA [None]
  - THIRST [None]
  - HOMICIDE [None]
  - DEPRESSION [None]
  - BLOOD SODIUM DECREASED [None]
